FAERS Safety Report 18302578 (Version 11)
Quarter: 2022Q1

REPORT INFORMATION
  Report Type: Report from Study
  Country: CA (occurrence: CA)
  Receive Date: 20200923
  Receipt Date: 20220127
  Transmission Date: 20220423
  Serious: Yes (Hospitalization, Other)
  Sender: FDA-Public Use
  Company Number: PHHY2018CA171525

PATIENT
  Age: 28 Year
  Sex: Male
  Weight: 90 kg

DRUGS (11)
  1. COSENTYX [Suspect]
     Active Substance: SECUKINUMAB
     Indication: Psoriatic arthropathy
     Dosage: 300 MG, UNKNOWN
     Route: 058
     Dates: start: 20180108, end: 20180205
  2. COSENTYX [Suspect]
     Active Substance: SECUKINUMAB
     Indication: Psoriasis
     Dosage: 300 MG, UNKNOWN
     Route: 058
     Dates: start: 20180305, end: 20180505
  3. COSENTYX [Suspect]
     Active Substance: SECUKINUMAB
     Dosage: 300 MG, UNKNOWN
     Route: 058
     Dates: start: 20180706, end: 20181106
  4. COSENTYX [Suspect]
     Active Substance: SECUKINUMAB
     Dosage: 300 MG, Q2W
     Route: 058
     Dates: start: 20181115, end: 20190808
  5. COSENTYX [Suspect]
     Active Substance: SECUKINUMAB
     Dosage: 300 MG, Q2W
     Route: 058
  6. COSENTYX [Suspect]
     Active Substance: SECUKINUMAB
     Dosage: 300 MG, Q2W
     Route: 058
  7. COSENTYX [Suspect]
     Active Substance: SECUKINUMAB
     Dosage: 300 MG, BIW
     Route: 058
     Dates: start: 20190906, end: 20210921
  8. COSENTYX [Suspect]
     Active Substance: SECUKINUMAB
     Dosage: 300 MG, UNKNOWN
     Route: 058
     Dates: start: 20211019
  9. TOPISONE [Concomitant]
     Indication: Product used for unknown indication
     Dosage: UNK
     Route: 065
     Dates: start: 20170201
  10. CLARITHROMYCIN [Concomitant]
     Active Substance: CLARITHROMYCIN
     Indication: Prophylaxis
     Dosage: 100 MG, BID
     Route: 065
     Dates: start: 20211005, end: 20211012
  11. TYLENOL [Concomitant]
     Active Substance: ACETAMINOPHEN
     Indication: Pain management
     Dosage: 2 DOSAGE FORM, Q4H (1-2 DAYS)PRN
     Route: 065
     Dates: start: 20211005

REACTIONS (25)
  - Appendicitis [Recovered/Resolved]
  - Abdominal incarcerated hernia [Recovered/Resolved]
  - Acute kidney injury [Recovered/Resolved]
  - Gastroenteritis [Recovered/Resolved]
  - Renal failure [Recovered/Resolved]
  - Dehydration [Recovered/Resolved]
  - Diarrhoea [Recovered/Resolved]
  - Vomiting [Recovered/Resolved]
  - Psoriatic arthropathy [Recovered/Resolved]
  - Fungal infection [Recovered/Resolved]
  - Psoriasis [Recovered/Resolved]
  - Vision blurred [Recovered/Resolved]
  - Photopsia [Recovered/Resolved]
  - Vitreous floaters [Recovered/Resolved]
  - Migraine [Recovered/Resolved]
  - Lichen planus [Not Recovered/Not Resolved]
  - Sinusitis [Recovered/Resolved]
  - Chronic sinusitis [Not Recovered/Not Resolved]
  - Nasal septum ulceration [Recovered/Resolved]
  - Hypotension [Recovered/Resolved]
  - Sinus tachycardia [Not Recovered/Not Resolved]
  - Iron deficiency [Not Recovered/Not Resolved]
  - Insomnia [Not Recovered/Not Resolved]
  - Product use issue [Recovered/Resolved]
  - Product dose omission issue [Unknown]

NARRATIVE: CASE EVENT DATE: 20180930
